FAERS Safety Report 17185395 (Version 1)
Quarter: 2019Q4

REPORT INFORMATION
  Report Type: Spontaneous
  Country: US (occurrence: US)
  Receive Date: 20191220
  Receipt Date: 20191220
  Transmission Date: 20200122
  Serious: No
  Sender: FDA-Public Use
  Company Number: US-THERAPEUTICSMD-2019TMD04864

PATIENT
  Sex: Female
  Weight: 56.69 kg

DRUGS (6)
  1. IMVEXXY [Suspect]
     Active Substance: ESTRADIOL
     Indication: HORMONE REPLACEMENT THERAPY
     Dosage: STARTING DOSE BEFORE BEDTIME
     Route: 067
     Dates: start: 2019, end: 2019
  2. ESTROGEL [Concomitant]
     Active Substance: ESTRADIOL
     Dosage: UNK
  3. UNSPECIFIED MIGRAINE MEDICATION [Concomitant]
  4. UNSPECIFIED BLOOD PRESSURE MEDICATIONS [Concomitant]
     Active Substance: UNSPECIFIED INGREDIENT
  5. IMVEXXY [Suspect]
     Active Substance: ESTRADIOL
     Indication: ATROPHIC VULVOVAGINITIS
     Dosage: 10 ?G, 2X/WEEK BEFORE BEDTIME
     Route: 067
     Dates: start: 2019
  6. PREMARIN [Concomitant]
     Active Substance: ESTROGENS, CONJUGATED
     Dosage: UNK

REACTIONS (7)
  - Atrophic vulvovaginitis [Not Recovered/Not Resolved]
  - Product dose omission [Unknown]
  - Drug ineffective [Not Recovered/Not Resolved]
  - Cardiac disorder [Not Recovered/Not Resolved]
  - Pneumonia [Unknown]
  - Breast mass [Not Recovered/Not Resolved]
  - Vulvovaginal discomfort [Not Recovered/Not Resolved]

NARRATIVE: CASE EVENT DATE: 2019
